FAERS Safety Report 10747340 (Version 2)
Quarter: 2015Q2

REPORT INFORMATION
  Report Type: Spontaneous
  Country: US (occurrence: None)
  Receive Date: 20150127
  Receipt Date: 20150417
  Transmission Date: 20150821
  Serious: Yes (Other)
  Sender: FDA-Public Use
  Company Number: US2015GSK008608

PATIENT
  Age: 73 Year
  Sex: Male

DRUGS (2)
  1. EPIVIR [Suspect]
     Active Substance: LAMIVUDINE
     Indication: LYMPHOMA
     Dates: start: 201409
  2. EPIVIR [Suspect]
     Active Substance: LAMIVUDINE
     Indication: NEOPLASM MALIGNANT
     Dates: start: 201409

REACTIONS (1)
  - Neoplasm malignant [None]

NARRATIVE: CASE EVENT DATE: 201409
